FAERS Safety Report 17117996 (Version 1)
Quarter: 2019Q4

REPORT INFORMATION
  Report Type: Spontaneous
  Country: US (occurrence: US)
  Receive Date: 20191205
  Receipt Date: 20191205
  Transmission Date: 20200122
  Serious: Yes (Other)
  Sender: FDA-Public Use
  Company Number: US-SA-2018SA023277

PATIENT
  Age: 72 Year
  Sex: Female
  Weight: 79 kg

DRUGS (32)
  1. TAXOTERE [Suspect]
     Active Substance: DOCETAXEL
     Dosage: UNK UNK,Q3W
     Route: 042
     Dates: start: 20120404, end: 20120404
  2. LIDODERM [Concomitant]
     Active Substance: LIDOCAINE
     Route: 065
  3. ESOMEPRAZOLE. [Concomitant]
     Active Substance: ESOMEPRAZOLE MAGNESIUM
     Route: 065
  4. NEURONTIN [Concomitant]
     Active Substance: GABAPENTIN
     Route: 065
  5. CLARITIN ALLERGIC [Concomitant]
     Route: 065
  6. HERCEPTIN [Concomitant]
     Active Substance: TRASTUZUMAB
     Dosage: UNK UNK, Q3W
     Dates: start: 20131212, end: 20131212
  7. TAXOTERE [Suspect]
     Active Substance: DOCETAXEL
     Indication: BREAST CANCER FEMALE
     Dosage: UNK UNK,Q3W
     Route: 042
     Dates: start: 20111123, end: 20111123
  8. TAXOTERE [Suspect]
     Active Substance: DOCETAXEL
     Dosage: 120 MG, Q3W
     Route: 042
     Dates: start: 20130112, end: 20130112
  9. DOXORUBICIN [Concomitant]
     Active Substance: DOXORUBICIN
     Indication: BREAST CANCER FEMALE
     Route: 065
  10. HERCEPTIN [Concomitant]
     Active Substance: TRASTUZUMAB
     Dosage: UNK, Q3W
     Dates: start: 20140327, end: 20140327
  11. SYNTHROID [Concomitant]
     Active Substance: LEVOTHYROXINE SODIUM
     Dosage: UNK
     Dates: start: 20000101
  12. TAXOTERE [Suspect]
     Active Substance: DOCETAXEL
     Dosage: 120 MG, Q3W
     Route: 042
     Dates: start: 20140103, end: 20140103
  13. PARAPLATIN [Concomitant]
     Active Substance: CARBOPLATIN
     Dosage: UNK UNK, Q3W
     Dates: start: 20140327, end: 20140327
  14. ADVAIR HFA [Concomitant]
     Active Substance: FLUTICASONE PROPIONATE\SALMETEROL XINAFOATE
     Route: 065
  15. NORVASC [Concomitant]
     Active Substance: AMLODIPINE BESYLATE
     Dosage: UNK
     Route: 065
     Dates: start: 19780101
  16. TYLENOL 8HR [Concomitant]
     Active Substance: ACETAMINOPHEN
     Route: 065
  17. IBUPROFEN. [Concomitant]
     Active Substance: IBUPROFEN
     Route: 065
  18. XANAX [Concomitant]
     Active Substance: ALPRAZOLAM
     Dosage: UNK
     Route: 065
     Dates: start: 20000101
  19. VENTOLIN [Concomitant]
     Active Substance: ALBUTEROL SULFATE
     Dosage: UNK
     Route: 065
     Dates: start: 20000101
  20. GABAPENTIN. [Concomitant]
     Active Substance: GABAPENTIN
     Route: 065
  21. HCTZ [Concomitant]
     Active Substance: HYDROCHLOROTHIAZIDE
     Dosage: UNK
     Route: 065
     Dates: start: 20050101
  22. TAXOTERE [Suspect]
     Active Substance: DOCETAXEL
     Dosage: 72 MG/M2, Q3W
     Dates: start: 20140327, end: 20140327
  23. PARAPLATIN [Concomitant]
     Active Substance: CARBOPLATIN
     Indication: BREAST CANCER FEMALE
     Dosage: UNK UNK, Q3W
     Route: 065
     Dates: start: 20131212, end: 20131212
  24. NEOSAR [Concomitant]
     Active Substance: CYCLOPHOSPHAMIDE
     Indication: BREAST CANCER FEMALE
     Route: 065
  25. METHOCARBAMOL. [Concomitant]
     Active Substance: METHOCARBAMOL
     Route: 065
  26. ATACAND [Concomitant]
     Active Substance: CANDESARTAN CILEXETIL
     Dosage: UNK
     Route: 065
     Dates: start: 19780101
  27. SINGULAIR [Concomitant]
     Active Substance: MONTELUKAST SODIUM
     Dosage: UNK
     Route: 065
     Dates: start: 20000101
  28. NASONEX [Concomitant]
     Active Substance: MOMETASONE FUROATE
     Route: 065
  29. TAXOTERE [Suspect]
     Active Substance: DOCETAXEL
     Dosage: 72 MG/M2, Q3W
     Route: 042
     Dates: start: 20121212, end: 20121212
  30. NEXIUM [Concomitant]
     Active Substance: ESOMEPRAZOLE MAGNESIUM
     Dosage: UNK
     Route: 065
     Dates: start: 20100101
  31. LOVAZA [Concomitant]
     Active Substance: OMEGA-3-ACID ETHYL ESTERS
     Dosage: UNK
     Route: 065
     Dates: start: 20100101
  32. VITAMIN D [VITAMIN D NOS] [Concomitant]
     Active Substance: VITAMIN D NOS
     Route: 065

REACTIONS (2)
  - Psychological trauma [Unknown]
  - Alopecia [Recovering/Resolving]

NARRATIVE: CASE EVENT DATE: 20141001
